FAERS Safety Report 15881569 (Version 1)
Quarter: 2019Q1

REPORT INFORMATION
  Report Type: Spontaneous
  Country: US (occurrence: US)
  Receive Date: 20190128
  Receipt Date: 20190128
  Transmission Date: 20190417
  Serious: Yes (Hospitalization)
  Sender: FDA-Public Use
  Company Number: US-SA-2019SA019222

PATIENT
  Age: 76 Year
  Sex: Male

DRUGS (1)
  1. LANTUS [Suspect]
     Active Substance: INSULIN GLARGINE
     Indication: TYPE 2 DIABETES MELLITUS
     Dosage: 20 UNITS BREAKFAST AND 27 UNITS BEDTIME
     Route: 065

REACTIONS (3)
  - Inappropriate schedule of product administration [Unknown]
  - Blood glucose increased [Unknown]
  - Blood glucose fluctuation [Unknown]
